FAERS Safety Report 8541080-1 (Version None)
Quarter: 2012Q3

REPORT INFORMATION
  Report Type: 
  Country: None (occurrence: None)
  Receive Date: 20120726
  Receipt Date: 20110815
  Transmission Date: 20120928
  Serious: No
  Sender: FDA-Public Use
  Company Number: US-ASTRAZENECA-2011SE49188

PATIENT
  Age: 43 Year
  Sex: Male
  Weight: 90.7 kg

DRUGS (11)
  1. SEROQUEL [Suspect]
     Route: 048
     Dates: start: 20110301
  2. SEROQUEL [Suspect]
     Route: 048
     Dates: start: 20110301
  3. SEROQUEL [Suspect]
     Route: 048
     Dates: start: 20110301
  4. REMERON [Concomitant]
  5. PAXIL [Concomitant]
  6. GABAPENTIN [Concomitant]
  7. OXYCODONE HCL [Concomitant]
  8. SEROQUEL [Suspect]
     Indication: BIPOLAR DISORDER
     Route: 048
  9. CHOLODIPINE [Concomitant]
  10. SEROQUEL [Suspect]
     Indication: MAJOR DEPRESSION
     Route: 048
  11. SEROQUEL [Suspect]
     Indication: INSOMNIA
     Route: 048

REACTIONS (4)
  - OFF LABEL USE [None]
  - DRUG ADMINISTRATION ERROR [None]
  - DRUG DOSE OMISSION [None]
  - INSOMNIA [None]
